FAERS Safety Report 24071629 (Version 1)
Quarter: 2024Q3

REPORT INFORMATION
  Report Type: Report from Study
  Country: US (occurrence: US)
  Receive Date: 20240710
  Receipt Date: 20240710
  Transmission Date: 20241016
  Serious: No
  Sender: ROCHE
  Company Number: US-ROCHE-3093935

PATIENT
  Age: 44 Year
  Sex: Female
  Weight: 59.8 kg

DRUGS (8)
  1. ALECENSA [Suspect]
     Active Substance: ALECTINIB HYDROCHLORIDE
     Indication: Metastases to central nervous system
     Dosage: FOUR CAPSULES IN THE MORNING AND FOUR CAPSULES IN THE EVENING
     Route: 048
     Dates: start: 202001, end: 20220413
  2. ALECENSA [Suspect]
     Active Substance: ALECTINIB HYDROCHLORIDE
     Indication: Metastases to central nervous system
     Route: 048
     Dates: start: 20230419, end: 20230419
  3. ALECENSA [Suspect]
     Active Substance: ALECTINIB HYDROCHLORIDE
     Dosage: TAKE 4 CAPSULE (600 MG TOTAL) BY MOUTH (2 TIMES A DAY WITH MEALS) TAKE WITH FOOD.??STRENGTH: 150 MG
     Route: 048
     Dates: start: 20211118, end: 20220413
  4. ALECENSA [Suspect]
     Active Substance: ALECTINIB HYDROCHLORIDE
     Dosage: TAKE 4 CAPSULE (60 MG TOTAL) BY MOUTH 2 (TWO) TIMES A DAY WITH MEALS, TAKE WITH FOOD, QTY: 240 AND R
     Route: 048
     Dates: start: 20220517
  5. COVID 19 VACCINE (UNK INGREDIENTS) [Concomitant]
     Dates: start: 20211208
  6. COVID 19 VACCINE (UNK INGREDIENTS) [Concomitant]
     Dates: start: 20210407
  7. COVID 19 VACCINE (UNK INGREDIENTS) [Concomitant]
     Dates: start: 20210317
  8. INFLUENZA VIRUS VACCINE [Concomitant]
     Active Substance: INFLUENZA VIRUS VACCINE

REACTIONS (1)
  - Rosacea [Not Recovered/Not Resolved]

NARRATIVE: CASE EVENT DATE: 20230101
